FAERS Safety Report 19301131 (Version 1)
Quarter: 2021Q2

REPORT INFORMATION
  Report Type: Spontaneous
  Country: US (occurrence: US)
  Receive Date: 20210525
  Receipt Date: 20210525
  Transmission Date: 20210717
  Serious: Yes (Other)
  Sender: FDA-Public Use
  Company Number: None

PATIENT
  Age: 58 Year
  Sex: Female
  Weight: 142.65 kg

DRUGS (9)
  1. FLUOXETINE HCL [Concomitant]
     Active Substance: FLUOXETINE HYDROCHLORIDE
  2. LORAZEPAM. [Concomitant]
     Active Substance: LORAZEPAM
  3. ATORVASTATIN [Concomitant]
     Active Substance: ATORVASTATIN
  4. ALBUTEROL HFA [Concomitant]
     Active Substance: ALBUTEROL SULFATE
  5. FERROUS SULFATE. [Concomitant]
     Active Substance: FERROUS SULFATE
  6. BUPRENORPHINE. [Concomitant]
     Active Substance: BUPRENORPHINE
  7. D?3 [Concomitant]
     Active Substance: CHOLECALCIFEROL
  8. LISINOPRIL/HCTZ [Concomitant]
     Active Substance: HYDROCHLOROTHIAZIDE\LISINOPRIL
  9. BUPRENORPHINE HCL 8MG SL TABLETS (GENERIC FOR SUBUTEX) [Suspect]
     Active Substance: BUPRENORPHINE HYDROCHLORIDE
     Indication: DEPENDENCE
     Dosage: ?          QUANTITY:1 TABLET(S);?
     Route: 060
     Dates: start: 20210524

REACTIONS (4)
  - Tongue discomfort [None]
  - Taste disorder [None]
  - Manufacturing issue [None]
  - Oral discomfort [None]

NARRATIVE: CASE EVENT DATE: 20210525
